FAERS Safety Report 10085027 (Version 2)
Quarter: 2014Q2

REPORT INFORMATION
  Report Type: Report from Study
  Country: JP (occurrence: JP)
  Receive Date: 20140417
  Receipt Date: 20140417
  Transmission Date: 20141212
  Serious: Yes (Hospitalization)
  Sender: FDA-Public Use
  Company Number: JP-B.I. PHARMACEUTICALS,INC./RIDGEFIELD-2014-BI-11543GD

PATIENT
  Age: 92 Year
  Sex: Female

DRUGS (2)
  1. PRADAXA [Suspect]
     Indication: ATRIAL FIBRILLATION
     Dosage: 220 MG
     Route: 048
  2. ANTI-HYPERTENSIVE MEDICINE [Concomitant]
     Indication: HYPERTENSION
     Route: 065

REACTIONS (3)
  - Thalamus haemorrhage [Unknown]
  - Loss of consciousness [Unknown]
  - Hemiparesis [Unknown]
